FAERS Safety Report 7313703-6 (Version None)
Quarter: 2011Q1

REPORT INFORMATION
  Report Type: 
  Country: None (occurrence: None)
  Receive Date: 20110225
  Receipt Date: 20110214
  Transmission Date: 20110831
  Serious: Yes (Hospitalization, Other)
  Sender: FDA-Public Use
  Company Number: US-ELI_LILLY_AND_COMPANY-US201102004306

PATIENT
  Age: 58 Year
  Sex: Female

DRUGS (4)
  1. COUMADIN [Concomitant]
  2. SIMVASTATIN [Concomitant]
  3. CYMBALTA [Suspect]
     Indication: DEPRESSION
     Dosage: 30 MG, DAILY (1/D)
  4. ACTONEL [Concomitant]

REACTIONS (4)
  - KNEE ARTHROPLASTY [None]
  - ABDOMINAL PAIN [None]
  - DRUG DOSE OMISSION [None]
  - HAEMORRHAGE [None]
